FAERS Safety Report 19684487 (Version 1)
Quarter: 2021Q3

REPORT INFORMATION
  Report Type: Spontaneous
  Country: US (occurrence: US)
  Receive Date: 20210811
  Receipt Date: 20210811
  Transmission Date: 20211014
  Serious: Yes (Hospitalization)
  Sender: FDA-Public Use
  Company Number: None

PATIENT
  Age: 65 Year
  Sex: Male
  Weight: 72 kg

DRUGS (4)
  1. LISINOPRIL. [Concomitant]
     Active Substance: LISINOPRIL
  2. INSULIN [Concomitant]
     Active Substance: INSULIN NOS
  3. JARDIANCE [Suspect]
     Active Substance: EMPAGLIFLOZIN
     Indication: TYPE 2 DIABETES MELLITUS
     Dosage: ?          QUANTITY:1 TABLET(S);?
     Route: 048
     Dates: start: 20210726, end: 20210802
  4. VITAMIN CENTRUM SILVER FOR MEN [Concomitant]

REACTIONS (3)
  - Blood pressure decreased [None]
  - Diabetic ketoacidosis [None]
  - COVID-19 [None]

NARRATIVE: CASE EVENT DATE: 20210802
